FAERS Safety Report 21776019 (Version 4)
Quarter: 2023Q1

REPORT INFORMATION
  Report Type: Spontaneous
  Country: CA (occurrence: CA)
  Receive Date: 20221226
  Receipt Date: 20230330
  Transmission Date: 20230417
  Serious: Yes (Other)
  Sender: FDA-Public Use
  Company Number: CA-CELLTRION INC.-2022CA021538

PATIENT

DRUGS (5)
  1. INFLECTRA [Suspect]
     Active Substance: INFLIXIMAB-DYYB
     Indication: Crohn^s disease
     Dosage: 700 MG, WEEK 0,2,6 THEN EVERY 8 WEEKS FOR 12 MONTHS
     Route: 042
     Dates: start: 20221201
  2. INFLECTRA [Suspect]
     Active Substance: INFLIXIMAB-DYYB
     Dosage: 700 MG, WEEK 0,2,6 THEN EVERY 8 WEEKS
     Route: 042
     Dates: start: 20221215
  3. INFLECTRA [Suspect]
     Active Substance: INFLIXIMAB-DYYB
     Dosage: 700 MG, WEEK 0,2,6 THEN EVERY 8 WEEKS
     Route: 042
     Dates: start: 20221215
  4. INFLECTRA [Suspect]
     Active Substance: INFLIXIMAB-DYYB
     Dosage: 700 MG, WEEK 0,2,6 THEN EVERY 8 WEEKS
     Route: 042
     Dates: start: 20230113
  5. CANDESARTAN [Concomitant]
     Active Substance: CANDESARTAN
     Indication: Hypotension
     Dosage: UNK

REACTIONS (6)
  - Heart rate decreased [Unknown]
  - Cardiac pacemaker insertion [Unknown]
  - Fall [Not Recovered/Not Resolved]
  - Blood pressure decreased [Unknown]
  - Skin laceration [Unknown]
  - Headache [Unknown]

NARRATIVE: CASE EVENT DATE: 20221213
